FAERS Safety Report 9700097 (Version 1)
Quarter: 2013Q4

REPORT INFORMATION
  Report Type: Report from Study
  Country: US (occurrence: US)
  Receive Date: 20131121
  Receipt Date: 20131121
  Transmission Date: 20140711
  Serious: Yes (Hospitalization, Other)
  Sender: FDA-Public Use
  Company Number: US-ROCHE-1303210

PATIENT
  Age: 59 Year
  Sex: Female
  Weight: 116.22 kg

DRUGS (2)
  1. XELODA [Suspect]
     Indication: COLORECTAL CANCER METASTATIC
     Dosage: EVERY MORNING
     Route: 048
     Dates: start: 20130520, end: 20130731
  2. XELODA [Suspect]
     Dosage: EVERY EVENING
     Route: 048
     Dates: start: 20130520, end: 20130731

REACTIONS (3)
  - Hysterectomy [Recovering/Resolving]
  - Gastrointestinal disorder [Recovering/Resolving]
  - Colon operation [Recovering/Resolving]
